FAERS Safety Report 5946833-1 (Version None)
Quarter: 2008Q4

REPORT INFORMATION
  Report Type: 
  Country: None (occurrence: None)
  Receive Date: 20081110
  Receipt Date: 20081105
  Transmission Date: 20090506
  Serious: Yes (Hospitalization)
  Sender: FDA-Public Use
  Company Number: US-GILEAD-2008-0018739

PATIENT
  Sex: Female

DRUGS (20)
  1. LETAIRIS [Suspect]
     Route: 048
     Dates: start: 20080806, end: 20081001
  2. LETAIRIS [Suspect]
     Route: 048
     Dates: start: 20081001
  3. PROGRAF [Suspect]
     Indication: IMMUNOSUPPRESSION
  4. OXYCODONE HCL [Concomitant]
  5. GABAPENTIN [Concomitant]
  6. PREDNISONE TAB [Concomitant]
  7. LIPITOR [Concomitant]
  8. TRAMADOL HCL [Concomitant]
  9. INDAPAMIDE [Concomitant]
  10. COUMADIN [Concomitant]
  11. NORVASC [Concomitant]
  12. DIOVAN [Concomitant]
  13. IMODIUM [Concomitant]
  14. PRILOSEC [Concomitant]
  15. LEVOTHYROXINE SODIUM [Concomitant]
  16. IMURAN [Concomitant]
  17. TYLENOL [Concomitant]
  18. ACYCLOVIR [Concomitant]
  19. VFEND [Concomitant]
  20. FUROSEMIDE [Concomitant]

REACTIONS (5)
  - ABDOMINAL PAIN [None]
  - ATRIAL FIBRILLATION [None]
  - DIARRHOEA [None]
  - PNEUMONIA [None]
  - RENAL FAILURE [None]
